FAERS Safety Report 12699317 (Version 3)
Quarter: 2016Q4

REPORT INFORMATION
  Report Type: Spontaneous
  Country: KR (occurrence: KR)
  Receive Date: 20160830
  Receipt Date: 20161003
  Transmission Date: 20170207
  Serious: Yes (Death, Hospitalization, Other)
  Sender: FDA-Public Use
  Company Number: KR-009507513-1608KOR014988

PATIENT
  Age: 56 Year
  Sex: Female
  Weight: 56.7 kg

DRUGS (11)
  1. DEXAMETHASONE. [Concomitant]
     Active Substance: DEXAMETHASONE
     Indication: PROPHYLAXIS OF NAUSEA AND VOMITING
     Dosage: 0.5 MG, QD
     Route: 048
     Dates: start: 20160622, end: 20160624
  2. GENEXOL [Concomitant]
     Indication: BILE DUCT CANCER
     Dosage: 276 MG, QD, CYCLE 1
     Route: 042
     Dates: start: 20160621, end: 20160621
  3. DILATREND [Concomitant]
     Active Substance: CARVEDILOL
     Indication: HYPERTENSION
     Dosage: 1 TABLET, QD
     Route: 048
     Dates: start: 20160530
  4. LASIX [Concomitant]
     Active Substance: FUROSEMIDE
     Indication: OEDEMA
     Dosage: 20 MG, QD, STREGHT 20MG/2ML
     Route: 042
     Dates: start: 20160621, end: 20160621
  5. TAGAMET [Concomitant]
     Active Substance: CIMETIDINE
     Indication: PROPHYLAXIS
     Dosage: 200 MG, QD, STREGHT 200MG/2ML
     Route: 042
     Dates: start: 20160621, end: 20160621
  6. CISPLATIN. [Concomitant]
     Active Substance: CISPLATIN
     Indication: BILE DUCT CANCER
     Dosage: 59 MG, QD, CYCLE 1
     Route: 042
     Dates: start: 20160621, end: 20160621
  7. ALOXI [Concomitant]
     Active Substance: PALONOSETRON HYDROCHLORIDE
     Indication: PROPHYLAXIS OF NAUSEA AND VOMITING
     Dosage: 5 ML, QD
     Route: 042
     Dates: start: 20160621, end: 20160621
  8. EMEND (FOSAPREPITANT DIMEGLUMINE) [Suspect]
     Active Substance: FOSAPREPITANT DIMEGLUMINE
     Indication: PROPHYLAXIS OF NAUSEA AND VOMITING
     Dosage: 150 MG, ONCE
     Route: 042
     Dates: start: 20160621, end: 20160621
  9. PLAKON [Concomitant]
     Indication: PROPHYLAXIS
     Dosage: 3 MG, QD, STRENGTH 3MG/2ML
     Route: 042
     Dates: start: 20160621, end: 20160621
  10. ATACAND [Concomitant]
     Active Substance: CANDESARTAN CILEXETIL
     Indication: HYPERTENSION
     Dosage: 1 TABLET, QD
     Route: 048
     Dates: start: 20160530
  11. DEXAMETHASONE SODIUM PHOSPHATE. [Concomitant]
     Active Substance: DEXAMETHASONE SODIUM PHOSPHATE
     Indication: PROPHYLAXIS OF NAUSEA AND VOMITING
     Dosage: 10 MG, QD, STRENGTH 5 MG/ML
     Route: 042
     Dates: start: 20160621, end: 20160621

REACTIONS (3)
  - Depressed level of consciousness [Fatal]
  - Dyspnoea [Fatal]
  - Pain in extremity [Recovered/Resolved]

NARRATIVE: CASE EVENT DATE: 20160623
